FAERS Safety Report 5781700-8 (Version None)
Quarter: 2008Q2

REPORT INFORMATION
  Report Type: 
  Country: None (occurrence: None)
  Receive Date: 20080619
  Receipt Date: 20080611
  Transmission Date: 20081010
  Serious: Yes (Life-Threatening, Hospitalization)
  Sender: FDA-Public Use
  Company Number: 1003-2007-00158

PATIENT
  Age: 6 Year
  Sex: Male
  Weight: 29 kg

DRUGS (9)
  1. ELAPRASE [Suspect]
     Indication: MUCOPOLYSACCHARIDOSIS II
     Dosage: 0.5 MG/KG, 1X/WEEK, IV DRIP, 0.5 MG/KG, 1X/WEEK, IV DRIP
     Route: 041
     Dates: start: 20061113, end: 20070507
  2. ELAPRASE [Suspect]
     Indication: MUCOPOLYSACCHARIDOSIS II
     Dosage: 0.5 MG/KG, 1X/WEEK, IV DRIP, 0.5 MG/KG, 1X/WEEK, IV DRIP
     Route: 041
     Dates: start: 20070501
  3. ACETAMINOPHEN [Concomitant]
  4. BENADRYL [Concomitant]
  5. NASONEX [Concomitant]
  6. SINGULAIR [Concomitant]
  7. ALBUTEROL [Concomitant]
  8. ACIDOPHILUS (LACTOBACILLUS ACIDOPHILLUS) [Concomitant]
  9. OMNICEF (CEFOTAXIME SODIUM) [Concomitant]

REACTIONS (1)
  - BLOOD PRESSURE INCREASED [None]
